FAERS Safety Report 8154185-4 (Version None)
Quarter: 2012Q1

REPORT INFORMATION
  Report Type: 
  Country: None (occurrence: None)
  Receive Date: 20120217
  Receipt Date: 20120217
  Transmission Date: 20120608
  Serious: Yes (Death)
  Sender: FDA-Public Use
  Company Number: None

PATIENT
  Age: 69 Year
  Sex: Female

DRUGS (8)
  1. CITALOPRAM HYDROBROMIDE [Concomitant]
  2. PROPRANOLOL [Concomitant]
  3. REVLIMID [Suspect]
     Indication: MULTIPLE MYELOMA
     Dosage: 15MG DAILY ORALLY
     Route: 048
     Dates: start: 20090501, end: 20091101
  4. REVLIMID [Suspect]
     Indication: MULTIPLE MYELOMA
     Dosage: 15MG DAILY ORALLY
     Route: 048
     Dates: start: 20100901, end: 20110701
  5. WARFARIN SODIUM [Concomitant]
  6. LEVOTHROID [Concomitant]
  7. LOVASTATIN [Concomitant]
  8. OMEPRAZOLE [Concomitant]

REACTIONS (2)
  - TREATMENT NONCOMPLIANCE [None]
  - STEM CELL TRANSPLANT [None]
